FAERS Safety Report 9465647 (Version 1)
Quarter: 2013Q3

REPORT INFORMATION
  Report Type: Spontaneous
  Country: DE (occurrence: DE)
  Receive Date: 20130820
  Receipt Date: 20130820
  Transmission Date: 20140515
  Serious: Yes (Hospitalization, Other)
  Sender: FDA-Public Use
  Company Number: DE-JNJFOC-20130805777

PATIENT
  Age: 37 Year
  Sex: Female

DRUGS (3)
  1. HALDOL [Suspect]
     Indication: PSYCHOTIC DISORDER
     Dosage: 3 TRIMESTER
     Route: 048
  2. TAVOR [Suspect]
     Indication: PSYCHOTIC DISORDER
     Dosage: 3 TRIMESTER
     Route: 048
  3. CELESTAN [Concomitant]
     Indication: MATERNAL THERAPY TO ENHANCE FOETAL LUNG MATURITY
     Dosage: 3 TRIMESTER
     Route: 042

REACTIONS (2)
  - Premature labour [Recovered/Resolved]
  - Exposure during pregnancy [Recovered/Resolved]
